FAERS Safety Report 9642341 (Version 1)
Quarter: 2013Q4

REPORT INFORMATION
  Report Type: Spontaneous
  Country: US (occurrence: US)
  Receive Date: 20131024
  Receipt Date: 20131024
  Transmission Date: 20140711
  Serious: No
  Sender: FDA-Public Use
  Company Number: US-BIOGENIDEC-2013BI100887

PATIENT
  Age: 48 Year
  Sex: Female

DRUGS (5)
  1. TYSABRI [Suspect]
     Indication: MULTIPLE SCLEROSIS
     Route: 042
     Dates: start: 20060701, end: 20061001
  2. TYSABRI [Suspect]
     Indication: MULTIPLE SCLEROSIS
     Route: 042
     Dates: start: 20070319, end: 20071224
  3. TYSABRI [Suspect]
     Indication: MULTIPLE SCLEROSIS
     Route: 042
     Dates: start: 20080822, end: 20121010
  4. AVONEX [Concomitant]
     Indication: MULTIPLE SCLEROSIS
     Route: 030
  5. AVONEX [Concomitant]
     Indication: MULTIPLE SCLEROSIS
     Route: 030
     Dates: start: 19970601

REACTIONS (17)
  - Suicidal ideation [Recovered/Resolved]
  - Cough [Recovered/Resolved]
  - Bronchoscopy [Recovered/Resolved]
  - Panic disorder [Unknown]
  - Vitamin D deficiency [Unknown]
  - Sebaceous hyperplasia [Unknown]
  - Osteopenia [Unknown]
  - Obsessive-compulsive disorder [Unknown]
  - Neurogenic bladder [Unknown]
  - Amnesia [Unknown]
  - Insomnia [Unknown]
  - Migraine [Unknown]
  - Pain [Unknown]
  - Cholecystectomy [Recovered/Resolved]
  - Candida infection [Recovered/Resolved]
  - Bronchitis [Unknown]
  - Fatigue [Unknown]
